FAERS Safety Report 20719664 (Version 1)
Quarter: 2022Q2

REPORT INFORMATION
  Report Type: Spontaneous
  Country: JP (occurrence: JP)
  Receive Date: 20220418
  Receipt Date: 20220418
  Transmission Date: 20220720
  Serious: Yes (Death, Hospitalization, Other)
  Sender: FDA-Public Use
  Company Number: JP-FLORIDAPHARMA-JP-2022FPPLIT00015

PATIENT
  Age: 59 Year
  Sex: Male
  Weight: 56.6 kg

DRUGS (1)
  1. LEVETIRACETAM [Suspect]
     Active Substance: LEVETIRACETAM
     Indication: Seizure prophylaxis
     Dosage: MORNING AND EVENING
     Route: 048

REACTIONS (3)
  - Drug reaction with eosinophilia and systemic symptoms [Fatal]
  - Drug-induced liver injury [Fatal]
  - Multiple organ dysfunction syndrome [Fatal]
